FAERS Safety Report 10452285 (Version 1)
Quarter: 2014Q3

REPORT INFORMATION
  Report Type: Spontaneous
  Country: US (occurrence: US)
  Receive Date: 20140915
  Receipt Date: 20140915
  Transmission Date: 20150326
  Serious: No
  Sender: FDA-Public Use
  Company Number: US-BAYER-2014-137273

PATIENT
  Age: 73 Year
  Sex: Male
  Weight: 141.5 kg

DRUGS (4)
  1. BAYER LOW DOSE [Concomitant]
     Active Substance: ASPIRIN
     Dosage: UNK DF, QOD
     Route: 048
  2. ALEVE [Suspect]
     Active Substance: NAPROXEN SODIUM
     Indication: ANALGESIC THERAPY
     Dosage: 1 DF, PRN
     Route: 048
     Dates: start: 20140906
  3. NIASPAN [Concomitant]
     Active Substance: NIACIN
  4. BAYER ASPIRIN REGIMEN REGULAR 325 MG STRENGTH [Concomitant]
     Active Substance: ASPIRIN
     Dosage: UNK DF, QOD
     Route: 048

REACTIONS (1)
  - Expired product administered [None]

NARRATIVE: CASE EVENT DATE: 20140906
